FAERS Safety Report 22653275 (Version 7)
Quarter: 2025Q4

REPORT INFORMATION
  Report Type: Spontaneous
  Country: CA (occurrence: CA)
  Receive Date: 20230629
  Receipt Date: 20251105
  Transmission Date: 20260118
  Serious: Yes (Life-Threatening, Hospitalization, Congenital Anomaly, Other)
  Sender: AUROBINDO
  Company Number: CA-AUROBINDO-AUR-APL-2023-033501

PATIENT
  Age: 66 Year
  Sex: Male
  Weight: 70 kg

DRUGS (24)
  1. APIXABAN [Suspect]
     Active Substance: APIXABAN
     Indication: Product used for unknown indication
     Dosage: 1 DOSAGE FORM
     Route: 048
  2. ANORO ELLIPTA [Suspect]
     Active Substance: UMECLIDINIUM BROMIDE\VILANTEROL TRIFENATATE
     Indication: Product used for unknown indication
     Dosage: 1 DOSAGE FORM, ONCE A DAY
     Route: 065
  3. EPINEPHRINE HYDROCHLORIDE [Suspect]
     Active Substance: EPINEPHRINE HYDROCHLORIDE
     Indication: Anaphylactic reaction
     Dosage: UNK
     Route: 065
  4. ELIQUIS [Suspect]
     Active Substance: APIXABAN
     Indication: Product used for unknown indication
     Dosage: 1 DOSAGE FORM
     Route: 065
  5. ELIQUIS [Suspect]
     Active Substance: APIXABAN
     Dosage: 1 DOSAGE FORM, TWO TIMES A DAY
     Route: 065
  6. EPINEPHRINE BITARTRATE [Suspect]
     Active Substance: EPINEPHRINE BITARTRATE
     Indication: Anaphylactic reaction
     Dosage: UNK
     Route: 065
  7. MEPOLIZUMAB [Suspect]
     Active Substance: MEPOLIZUMAB
     Indication: Asthma
     Dosage: 100 MILLIGRAM
     Route: 058
  8. NUCALA [Suspect]
     Active Substance: MEPOLIZUMAB
     Indication: Asthma
     Dosage: 100 MICROGRAM
     Route: 058
  9. NUCALA [Suspect]
     Active Substance: MEPOLIZUMAB
     Dosage: 100 MICROGRAM, EVERY 4 WEEKS
     Route: 058
  10. PREVNAR 13 [Suspect]
     Active Substance: STREPTOCOCCUS PNEUMONIAE TYPE 1 CAPSULAR POLYSACCHARIDE DIPHTHERIA CRM197 PROTEIN CONJUGATE ANTIGEN\
     Indication: Immunisation
     Dosage: UNK
     Route: 030
  11. PNEUMOCOCCAL 13-VALENT CONJUGATE VACCINE [Suspect]
     Active Substance: PNEUMOCOCCAL 13-VALENT CONJUGATE VACCINE
     Indication: Product used for unknown indication
     Dosage: 0.5 MILLILITER
     Route: 030
  12. PNEUMOCOCCAL 13-VALENT CONJUGATE VACCINE [Suspect]
     Active Substance: PNEUMOCOCCAL 13-VALENT CONJUGATE VACCINE
     Indication: Immunisation
     Dosage: 0.5 MILLILITER
     Route: 065
  13. LEVALBUTEROL [Suspect]
     Active Substance: LEVALBUTEROL
     Indication: Product used for unknown indication
     Dosage: 100 MILLIGRAM
     Route: 065
  14. UMECLIDINIUM BROMIDE [Suspect]
     Active Substance: UMECLIDINIUM BROMIDE
     Indication: Product used for unknown indication
     Dosage: 1 DOSAGE FORM, ONCE A DAY
     Route: 065
  15. UMECLIDINIUM BROMIDE [Suspect]
     Active Substance: UMECLIDINIUM BROMIDE
     Dosage: 1 GRAM
     Route: 065
  16. XOLAIR [Suspect]
     Active Substance: OMALIZUMAB
     Indication: Product used for unknown indication
     Dosage: UNK
     Route: 048
  17. BUDESONIDE\FORMOTEROL FUMARATE [Concomitant]
     Active Substance: BUDESONIDE\FORMOTEROL FUMARATE
     Indication: Product used for unknown indication
     Dosage: UNK
     Route: 065
  18. BUDESONIDE [Concomitant]
     Active Substance: BUDESONIDE
     Indication: Product used for unknown indication
     Dosage: UNK
  19. PREDNISONE [Concomitant]
     Active Substance: PREDNISONE
     Indication: Asthma
     Dosage: UNK
     Route: 048
  20. SPIRIVA [Concomitant]
     Active Substance: TIOTROPIUM BROMIDE MONOHYDRATE
     Indication: Product used for unknown indication
     Dosage: UNK
     Route: 065
  21. UMECLIDINIUM BROMIDE\VILANTEROL TRIFENATATE [Concomitant]
     Active Substance: UMECLIDINIUM BROMIDE\VILANTEROL TRIFENATATE
     Indication: Product used for unknown indication
     Dosage: 1 GRAM
     Route: 065
  22. UMECLIDINIUM BROMIDE\VILANTEROL TRIFENATATE [Concomitant]
     Active Substance: UMECLIDINIUM BROMIDE\VILANTEROL TRIFENATATE
     Dosage: 1 DOSAGE FORM, ONCE A DAY
     Route: 065
  23. EPINEPHRINE BITARTRATE [Concomitant]
     Active Substance: EPINEPHRINE BITARTRATE
     Indication: Product used for unknown indication
     Dosage: UNK
     Route: 065
  24. ALBUTEROL [Concomitant]
     Active Substance: ALBUTEROL
     Indication: Product used for unknown indication
     Dosage: UNK
     Route: 065

REACTIONS (19)
  - Asthma [Not Recovered/Not Resolved]
  - Acquired factor V deficiency [Not Recovered/Not Resolved]
  - Bronchopulmonary aspergillosis allergic [Not Recovered/Not Resolved]
  - Chronic obstructive pulmonary disease [Not Recovered/Not Resolved]
  - Congenital anomaly [Not Recovered/Not Resolved]
  - Dyspnoea [Not Recovered/Not Resolved]
  - Dry skin [Not Recovered/Not Resolved]
  - Erythema [Not Recovered/Not Resolved]
  - Factor V Leiden mutation [Not Recovered/Not Resolved]
  - Hypertension [Not Recovered/Not Resolved]
  - Loss of personal independence in daily activities [Not Recovered/Not Resolved]
  - Multiple allergies [Not Recovered/Not Resolved]
  - Pruritus [Not Recovered/Not Resolved]
  - Coagulation factor V level abnormal [Unknown]
  - Coagulation factor deficiency [Not Recovered/Not Resolved]
  - Drug ineffective [Not Recovered/Not Resolved]
  - Therapeutic product effect incomplete [Not Recovered/Not Resolved]
  - Lower gastrointestinal haemorrhage [Unknown]
  - Off label use [Unknown]
